FAERS Safety Report 5472390-2 (Version None)
Quarter: 2007Q3

REPORT INFORMATION
  Report Type: 
  Country: None (occurrence: None)
  Receive Date: 20070927
  Receipt Date: 20070914
  Transmission Date: 20080115
  Serious: Yes (Life-Threatening, Hospitalization, Other)
  Sender: FDA-Public Use
  Company Number: A-NJ2007-17604

PATIENT
  Age: 64 Year
  Sex: Male

DRUGS (14)
  1. TRACLEER [Suspect]
     Indication: PULMONARY HYPERTENSION
     Dosage: 125 MG, BID, ORAL
     Route: 048
     Dates: start: 20051021, end: 20070818
  2. ALCOHOL (ETHANOL) [Suspect]
  3. DIGOXIN [Concomitant]
  4. SILDENAFIL CITRATE [Concomitant]
  5. ADVAIR (SALMETEROL XINAFOATE, FLUTICASONE PROPIONATE) [Concomitant]
  6. COMBIVENT (IPRATROPOUM BROMIDE, SALBUTAMOL SULFATE) [Concomitant]
  7. DIOVAN [Concomitant]
  8. ASPIRIN [Concomitant]
  9. PLAVIX [Concomitant]
  10. COLCHICUM JTL LIQ [Concomitant]
  11. LOPRESSOR [Concomitant]
  12. COUMADIN [Concomitant]
  13. PERCOCET [Concomitant]
  14. ATIVAN [Concomitant]

REACTIONS (6)
  - ACUTE MYOCARDIAL INFARCTION [None]
  - COUGH [None]
  - DIARRHOEA [None]
  - HEPATITIS ACUTE [None]
  - RENAL FAILURE [None]
  - SHOCK [None]
